FAERS Safety Report 7305891-2 (Version None)
Quarter: 2011Q1

REPORT INFORMATION
  Report Type: 
  Country: None (occurrence: None)
  Receive Date: 20110222
  Receipt Date: 20110215
  Transmission Date: 20110831
  Serious: Yes (Other)
  Sender: FDA-Public Use
  Company Number: US-ALEXION-A201100076

PATIENT
  Sex: Male

DRUGS (3)
  1. RITALIN [Concomitant]
     Dosage: UNK
  2. SOLIRIS [Suspect]
     Indication: PAROXYSMAL NOCTURNAL HAEMOGLOBINURIA
     Dosage: 900 MG, Q2W
     Route: 042
     Dates: start: 20090101
  3. ANTIEPILEPTICS [Concomitant]
     Indication: CONVULSION
     Dosage: UNK

REACTIONS (4)
  - CONVULSION [None]
  - NASOPHARYNGITIS [None]
  - PYREXIA [None]
  - DIARRHOEA [None]
